FAERS Safety Report 6199988-0 (Version None)
Quarter: 2009Q2

REPORT INFORMATION
  Report Type: 
  Country: None (occurrence: None)
  Receive Date: 20090522
  Receipt Date: 20090519
  Transmission Date: 20091009
  Serious: Yes (Hospitalization)
  Sender: FDA-Public Use
  Company Number: ES-BRISTOL-MYERS SQUIBB COMPANY-14629307

PATIENT
  Age: 44 Year
  Sex: Male

DRUGS (6)
  1. SUSTIVA [Suspect]
     Dosage: 30 TABLETS
     Route: 048
     Dates: start: 20090311, end: 20090328
  2. VALPROATE SODIUM [Suspect]
     Route: 048
     Dates: start: 20090308, end: 20090319
  3. DARAPRIM [Suspect]
     Dosage: 25MG TABLET 30TABLETS
     Route: 048
     Dates: start: 20090310, end: 20090320
  4. SULFADIAZINE [Suspect]
     Dosage: 500 MG TABLET 20TABLETS
     Route: 048
     Dates: start: 20090309, end: 20090320
  5. VIREAD [Suspect]
     Dosage: 245MG TABLET 30 TABLET
     Route: 048
     Dates: start: 20090311, end: 20090328
  6. ZIAGEN [Suspect]
     Dosage: 300MG TABLET; 60TABLETS
     Route: 048
     Dates: start: 20090311, end: 20090328

REACTIONS (2)
  - AGRANULOCYTOSIS [None]
  - THROMBOCYTOPENIA [None]
